FAERS Safety Report 11179057 (Version 1)
Quarter: 2015Q2

REPORT INFORMATION
  Report Type: Spontaneous
  Country: US (occurrence: None)
  Receive Date: 20150514
  Receipt Date: 20150514
  Transmission Date: 20150821
  Serious: No
  Sender: FDA-Public Use
  Company Number: US-145654

PATIENT
  Age: 77 Year
  Sex: Female
  Weight: 87 kg

DRUGS (2)
  1. AMPICILLIN SODIUM W/ULBACTAM SODIUM [Concomitant]
  2. BOTULISM ANTITOXIN [Suspect]
     Active Substance: BOTULISM ANTITOXIN
     Dosage: INTRAVENOUS (NOT OTHERWISE SPECIFIED)
     Route: 042
     Dates: start: 20150423, end: 20150423

REACTIONS (3)
  - Tachycardia [None]
  - Bradycardia [None]
  - Botulism [None]

NARRATIVE: CASE EVENT DATE: 20150423
